FAERS Safety Report 7076396 (Version 4)
Quarter: 2015Q3

REPORT INFORMATION
  Report Type: Spontaneous
  Country: FR (occurrence: FR)
  Receive Date: 20090810
  Receipt Date: 20150708
  Transmission Date: 20151125
  Serious: Yes (Hospitalization)
  Sender: FDA-Public Use
  Company Number: FR-PFIZER INC-2009247271

PATIENT
  Age: 22 Year
  Sex: Female

DRUGS (16)
  1. ACLOTINE [Suspect]
     Active Substance: ANTITHROMBIN III HUMAN
     Dosage: UNK
     Route: 042
     Dates: start: 20080930, end: 20081008
  2. CIFLOX [Concomitant]
     Active Substance: CIPROFLOXACIN
  3. MORPHINE AGUETTANT [Concomitant]
     Active Substance: MORPHINE HYDROCHLORIDE
  4. XANAX [Concomitant]
     Active Substance: ALPRAZOLAM
  5. TRANXENE T-TAB [Concomitant]
     Active Substance: CLORAZEPATE DIPOTASSIUM
  6. TAZOCILLINE [Suspect]
     Active Substance: PIPERACILLIN SODIUM\TAZOBACTAM SODIUM
     Dosage: 4 G, 3X/DAY
     Route: 042
     Dates: start: 20080912, end: 20081007
  7. ACUPAN [Suspect]
     Active Substance: NEFOPAM HYDROCHLORIDE
     Dosage: UNK
     Route: 042
     Dates: start: 20081002, end: 20081008
  8. ZOPHREN [Concomitant]
     Active Substance: ONDANSETRON
     Route: 042
  9. KIDROLASE [Suspect]
     Active Substance: ASPARAGINASE
     Dosage: 9000 IU, ONCE EVERY TWO DAYS ON 18SEP, 20SEP, 22 SEP, 30 SEP AND 02OCT
     Route: 042
     Dates: start: 20080918, end: 20081002
  10. FLAGYL [Suspect]
     Active Substance: METRONIDAZOLE\METRONIDAZOLE HYDROCHLORIDE
     Dosage: 500 MG, 3X/DAY
     Route: 048
     Dates: start: 20080921, end: 20081005
  11. VOGALENE [Concomitant]
     Active Substance: METOPIMAZINE
  12. TRIFLUCAN [Suspect]
     Active Substance: FLUCONAZOLE
     Dosage: 400 MG, 1X/DAY
     Route: 042
     Dates: start: 20081001, end: 20081005
  13. GRANOCYTE [Concomitant]
     Active Substance: LENOGRASTIM
  14. TOPALGIC [Concomitant]
     Active Substance: TRAMADOL
  15. GLIVEC [Suspect]
     Active Substance: IMATINIB MESYLATE
     Dosage: 400 MG, 1X/DAY
     Route: 048
     Dates: start: 20081003, end: 20081008
  16. ATARAX [Concomitant]
     Active Substance: HYDROXYZINE\HYDROXYZINE HYDROCHLORIDE

REACTIONS (2)
  - Pancreatitis acute [Recovered/Resolved]
  - Cholestasis [Recovered/Resolved]

NARRATIVE: CASE EVENT DATE: 20081005
